FAERS Safety Report 23345266 (Version 5)
Quarter: 2024Q2

REPORT INFORMATION
  Report Type: Report from Study
  Country: CA (occurrence: CA)
  Receive Date: 20231228
  Receipt Date: 20240621
  Transmission Date: 20240716
  Serious: Yes (Hospitalization, Other)
  Sender: FDA-Public Use
  Company Number: CA-JNJFOC-20231255583

PATIENT
  Age: 28 Year
  Sex: Female
  Weight: 109 kg

DRUGS (1)
  1. REMICADE [Suspect]
     Active Substance: INFLIXIMAB
     Indication: Crohn^s disease
     Dosage: EXP: 01-NOV-2026
     Route: 041
     Dates: start: 20180619

REACTIONS (8)
  - Pelvic neoplasm [Unknown]
  - Post procedural complication [Unknown]
  - Abdominal neoplasm [Recovering/Resolving]
  - Burns second degree [Unknown]
  - Off label use [Unknown]
  - Treatment noncompliance [Unknown]
  - Diarrhoea [Unknown]
  - Abdominal pain [Unknown]

NARRATIVE: CASE EVENT DATE: 20231219
